FAERS Safety Report 9405078 (Version 2)
Quarter: 2013Q3

REPORT INFORMATION
  Report Type: Spontaneous
  Country: US (occurrence: US)
  Receive Date: 20130717
  Receipt Date: 20130918
  Transmission Date: 20140515
  Serious: Yes (Other)
  Sender: FDA-Public Use
  Company Number: US-BAYER-2013-084301

PATIENT
  Age: 58 Year
  Sex: Female

DRUGS (2)
  1. CLIMARA PRO [Suspect]
     Dosage: UNK
     Route: 062
     Dates: start: 201306
  2. PREMPRO [Concomitant]

REACTIONS (2)
  - Breast cancer [None]
  - Product packaging issue [None]
